FAERS Safety Report 16653488 (Version 3)
Quarter: 2022Q1

REPORT INFORMATION
  Report Type: Spontaneous
  Country: US (occurrence: US)
  Receive Date: 20190731
  Receipt Date: 20220301
  Transmission Date: 20220423
  Serious: Yes (Other)
  Sender: FDA-Public Use
  Company Number: US-GILEAD-2019-0420326

PATIENT
  Age: 49 Year
  Sex: Female

DRUGS (37)
  1. TRUVADA [Suspect]
     Active Substance: EMTRICITABINE\TENOFOVIR DISOPROXIL FUMARATE
     Indication: HIV infection
     Dosage: 1 DOSAGE FORM (200-300 MG), QD
     Route: 048
     Dates: start: 20090426, end: 201607
  2. ATRIPLA [Suspect]
     Active Substance: EFAVIRENZ\EMTRICITABINE\TENOFOVIR DISOPROXIL FUMARATE
     Indication: HIV infection
     Dosage: 1 DOSAGE FORM, QD
     Route: 048
     Dates: start: 20061030, end: 20080423
  3. BIKTARVY [Concomitant]
     Active Substance: BICTEGRAVIR SODIUM\EMTRICITABINE\TENOFOVIR ALAFENAMIDE FUMARATE
     Indication: HIV infection
     Dosage: 1 DOSAGE FORM (50-200-25 MG), QD
     Route: 048
  4. DESCOVY [Concomitant]
     Active Substance: EMTRICITABINE\TENOFOVIR ALAFENAMIDE FUMARATE
     Indication: HIV infection
     Dosage: 200-25 MG
  5. RISPERIDONE [Concomitant]
     Active Substance: RISPERIDONE
  6. REYATAZ [Concomitant]
     Active Substance: ATAZANAVIR SULFATE
  7. FAMOTIDINE [Concomitant]
     Active Substance: FAMOTIDINE
  8. METRONIDAZOLE [Concomitant]
     Active Substance: METRONIDAZOLE
  9. FLUCONAZOLE [Concomitant]
     Active Substance: FLUCONAZOLE
  10. NORVIR [Concomitant]
     Active Substance: RITONAVIR
  11. TRIAMCINOLONE [Concomitant]
     Active Substance: TRIAMCINOLONE
  12. CLOTRIMAZOLE [Concomitant]
     Active Substance: CLOTRIMAZOLE
  13. CEPHALEXIN [Concomitant]
     Active Substance: CEPHALEXIN
  14. MELOXICAM [Concomitant]
     Active Substance: MELOXICAM
  15. ACYCLOVIR [Concomitant]
     Active Substance: ACYCLOVIR
  16. SULFAMETHOXAZOLE AND TRIMETHOPRIM [Concomitant]
     Active Substance: SULFAMETHOXAZOLE\TRIMETHOPRIM
  17. MUPIROCIN [Concomitant]
     Active Substance: MUPIROCIN
  18. DOCUSATE SODIUM [Concomitant]
     Active Substance: DOCUSATE SODIUM
  19. CIPROFLOXACIN HYDROCHLORIDE [Concomitant]
     Active Substance: CIPROFLOXACIN HYDROCHLORIDE
  20. PREDNISONE [Concomitant]
     Active Substance: PREDNISONE
  21. VALACYCLOVIR HYDROCHLORIDE [Concomitant]
     Active Substance: VALACYCLOVIR HYDROCHLORIDE
  22. ONDANSETRON [Concomitant]
     Active Substance: ONDANSETRON
  23. AMOXICILLIN [Concomitant]
     Active Substance: AMOXICILLIN
  24. PROAIR HFA [Concomitant]
     Active Substance: ALBUTEROL SULFATE
  25. LEXAPRO [Concomitant]
     Active Substance: ESCITALOPRAM OXALATE
  26. BENZTROPINE [Concomitant]
     Active Substance: BENZTROPINE
  27. FLUOXETINE [Concomitant]
     Active Substance: FLUOXETINE HYDROCHLORIDE
  28. IMODIUM [Concomitant]
     Active Substance: LOPERAMIDE HYDROCHLORIDE
  29. DOXYCYCLINE [Concomitant]
     Active Substance: DOXYCYCLINE
  30. LOTRISONE [Concomitant]
     Active Substance: BETAMETHASONE DIPROPIONATE\CLOTRIMAZOLE
  31. VITAMINS NOS [Concomitant]
     Active Substance: VITAMINS
  32. OMEPRAZOLE [Concomitant]
     Active Substance: OMEPRAZOLE
  33. HYDROCODONE BITARTRATE AND ACETAMINOPHEN [Concomitant]
     Active Substance: ACETAMINOPHEN\HYDROCODONE BITARTRATE
  34. HYDROCORTISONE [Concomitant]
     Active Substance: HYDROCORTISONE
  35. PERMETHRIN [Concomitant]
     Active Substance: PERMETHRIN
  36. IBUPROFEN [Concomitant]
     Active Substance: IBUPROFEN
  37. OXYCODONE AND ACETAMINOPHEN [Concomitant]
     Active Substance: ACETAMINOPHEN\OXYCODONE HYDROCHLORIDE

REACTIONS (9)
  - Osteoporotic fracture [Unknown]
  - Chronic kidney disease [Not Recovered/Not Resolved]
  - Osteoporosis [Recovered/Resolved]
  - Emotional distress [Unknown]
  - Anhedonia [Unknown]
  - Economic problem [Unknown]
  - Bone density decreased [Not Recovered/Not Resolved]
  - Anxiety [Unknown]
  - Pain [Unknown]

NARRATIVE: CASE EVENT DATE: 20190701
